FAERS Safety Report 6998398-3 (Version None)
Quarter: 2010Q3

REPORT INFORMATION
  Report Type: 
  Country: None (occurrence: None)
  Receive Date: 20100920
  Receipt Date: 20100913
  Transmission Date: 20110219
  Serious: Yes (Hospitalization)
  Sender: FDA-Public Use
  Company Number: PHHO2009DE15816

PATIENT
  Sex: Male
  Weight: 77 kg

DRUGS (1)
  1. SANDOSTATIN [Suspect]
     Indication: ACROMEGALY
     Dosage: CODE NOT BROKEN
     Route: 030
     Dates: start: 20091007

REACTIONS (4)
  - RASH ERYTHEMATOUS [None]
  - RASH PAPULAR [None]
  - SCHAMBERG'S DISEASE [None]
  - SKIN LESION [None]
